FAERS Safety Report 9832797 (Version 2)
Quarter: 2014Q1

REPORT INFORMATION
  Report Type: Spontaneous
  Country: JP (occurrence: JP)
  Receive Date: 20140121
  Receipt Date: 20140204
  Transmission Date: 20141002
  Serious: Yes (Hospitalization)
  Sender: FDA-Public Use
  Company Number: JP-GLAXOSMITHKLINE-B0954296A

PATIENT
  Age: 45 Year
  Sex: Male

DRUGS (9)
  1. LAMICTAL [Suspect]
     Indication: BIPOLAR DISORDER
     Dosage: 25MG PER DAY
     Route: 048
     Dates: start: 20131029, end: 20131104
  2. LAMICTAL [Suspect]
     Indication: BIPOLAR DISORDER
     Dosage: 25MG TWICE PER DAY
     Route: 048
     Dates: start: 20131105, end: 20131111
  3. RIVOTRIL [Concomitant]
     Dosage: .5MG TWICE PER DAY
     Route: 048
  4. LIMAS [Concomitant]
     Dosage: 200MG PER DAY
     Route: 048
  5. ABILIFY [Concomitant]
     Dosage: 3MG PER DAY
     Route: 048
  6. SULPIRIDE [Concomitant]
     Dosage: 50MG FOUR TIMES PER DAY
     Route: 048
  7. CHINESE MEDICINE [Concomitant]
     Indication: RHINITIS ALLERGIC
     Dosage: 3IUAX TWICE PER DAY
     Route: 048
  8. ALLELOCK [Concomitant]
     Route: 048
  9. AKINETON [Concomitant]
     Route: 065

REACTIONS (8)
  - Oculomucocutaneous syndrome [Recovered/Resolved]
  - Eczema [Recovered/Resolved]
  - Ocular hyperaemia [Recovered/Resolved]
  - Erythema of eyelid [Recovered/Resolved]
  - Erythema [Recovered/Resolved]
  - Erythema [Recovered/Resolved]
  - Pyrexia [Recovered/Resolved]
  - Rash [Recovered/Resolved]
